FAERS Safety Report 7504659-1 (Version None)
Quarter: 2011Q2

REPORT INFORMATION
  Report Type: 
  Country: None (occurrence: None)
  Receive Date: 20110525
  Receipt Date: 20110428
  Transmission Date: 20111010
  Serious: Yes (Other)
  Sender: FDA-Public Use
  Company Number: US-AMGEN-USASP2011018475

PATIENT
  Sex: Female

DRUGS (4)
  1. NPLATE [Suspect]
     Indication: IDIOPATHIC THROMBOCYTOPENIC PURPURA
     Dosage: 1 A?G/KG, QWK
     Route: 058
     Dates: start: 20100721, end: 20110112
  2. NPLATE [Suspect]
     Dates: start: 20100719, end: 20101215
  3. FASLODEX                           /01285001/ [Concomitant]
     Dosage: 250 MG, Q9MO
     Route: 030
     Dates: start: 20080814
  4. ABRAXANE [Concomitant]
     Dosage: 200 MG, UNK
     Route: 042

REACTIONS (1)
  - DRUG INEFFECTIVE [None]
